FAERS Safety Report 8979208 (Version 1)
Quarter: 2012Q4

REPORT INFORMATION
  Report Type: 
  Country: FR (occurrence: FR)
  Receive Date: 20121221
  Receipt Date: 20121221
  Transmission Date: 20130627
  Serious: Yes (Hospitalization)
  Sender: FDA-Public Use
  Company Number: FR-GLAXOSMITHKLINE-B0851378A

PATIENT
  Age: 79 Year
  Sex: Female

DRUGS (7)
  1. ARIXTRA [Suspect]
     Indication: THROMBOPHLEBITIS
     Dosage: 7.5MG Per day
     Route: 058
     Dates: start: 20120831, end: 20120915
  2. VASTAREL [Concomitant]
     Indication: DIZZINESS
     Dosage: 2UNIT per day
     Route: 048
     Dates: end: 20120915
  3. STABLON [Concomitant]
     Indication: DEPRESSION
     Dosage: 1UNIT per day
     Route: 048
     Dates: end: 20120920
  4. BEFIZAL [Concomitant]
     Indication: DYSLIPIDAEMIA
     Dosage: 1UNIT per day
     Route: 048
     Dates: end: 20120920
  5. ZANIDIP [Concomitant]
     Indication: HYPERTENSION
     Route: 048
     Dates: end: 20120915
  6. NOCTAMIDE [Concomitant]
  7. INIPOMP [Concomitant]

REACTIONS (3)
  - Haematoma [Recovered/Resolved]
  - Pallor [Unknown]
  - Haemoglobin decreased [Recovered/Resolved]
